FAERS Safety Report 10235832 (Version 2)
Quarter: 2014Q2

REPORT INFORMATION
  Report Type: Other
  Country: US (occurrence: US)
  Receive Date: 20140613
  Receipt Date: 20140613
  Transmission Date: 20141212
  Serious: Yes (Hospitalization, Other)
  Sender: FDA-Public Use
  Company Number: US-GSKPPD-2014GSK001529

PATIENT
  Age: 68 Year
  Sex: Male

DRUGS (9)
  1. AVANDIA [Suspect]
     Indication: DIABETES MELLITUS
     Route: 048
     Dates: start: 20030313, end: 20091010
  2. ASPIR-LOW [Concomitant]
     Route: 048
     Dates: start: 200910
  3. ISOSORBIDE [Concomitant]
     Route: 048
     Dates: start: 200910
  4. LASIX [Concomitant]
     Route: 048
     Dates: start: 200910
  5. ALDACTONE [Concomitant]
     Route: 048
     Dates: start: 200910
  6. LISINOPRIL [Concomitant]
     Route: 048
     Dates: start: 200910
  7. COUMADIN [Concomitant]
     Route: 048
     Dates: start: 200910
  8. ENOXAPARIN [Concomitant]
     Route: 058
     Dates: start: 200910
  9. HYDRALAZINE [Concomitant]
     Route: 048
     Dates: start: 200910

REACTIONS (2)
  - Cardiac failure congestive [Recovered/Resolved]
  - Atrial thrombosis [Recovered/Resolved]
